FAERS Safety Report 5278249-8 (Version None)
Quarter: 2007Q1

REPORT INFORMATION
  Report Type: 
  Country: None (occurrence: None)
  Receive Date: 20070328
  Receipt Date: 20070315
  Transmission Date: 20070707
  Serious: Yes (Hospitalization, Other)
  Sender: FDA-Public Use
  Company Number: US-ELI_LILLY_AND_COMPANY-US_021290601

PATIENT
  Age: 52 Year
  Sex: Female
  Weight: 77.273 kg

DRUGS (12)
  1. ZYPREXA [Suspect]
     Indication: ANXIETY
     Dosage: 15 MG, UNK
     Route: 048
     Dates: start: 19980901, end: 20020801
  2. ZYPREXA [Suspect]
     Dosage: 15 MG, DAILY (1/D)
     Dates: start: 20050401
  3. ZYPREXA [Suspect]
     Dosage: 10 MG, UNK
  4. ZYPREXA [Suspect]
     Dosage: 15 MG, UNK
     Dates: start: 20060401
  5. ZYPREXA [Suspect]
     Dosage: 7.5 MG, UNK
     Dates: start: 20070301
  6. LORAZEPAM [Concomitant]
     Indication: ANXIETY
     Dosage: 4 MG, DAILY (1/D)
  7. LORAZEPAM [Concomitant]
     Dosage: 2 MG, UNK
  8. PAXIL [Concomitant]
     Indication: DEPRESSION
     Dosage: 30 MG, DAILY (1/D)
     Route: 048
  9. FLEXERIL [Concomitant]
     Dosage: UNK, UNKNOWN
  10. LEXAPRO [Concomitant]
     Dosage: 10 MG, UNKNOWN
  11. LAMICTAL [Concomitant]
     Dosage: UNK, UNKNOWN
  12. EFFEXOR [Concomitant]
     Dosage: 200 MG, UNK

REACTIONS (14)
  - ANXIETY [None]
  - ARTHRALGIA [None]
  - ASTHENIA [None]
  - BACK PAIN [None]
  - BLOOD PRESSURE INCREASED [None]
  - BUCCOGLOSSAL SYNDROME [None]
  - DEPRESSION [None]
  - DISTURBANCE IN ATTENTION [None]
  - EXTRAPYRAMIDAL DISORDER [None]
  - FEELING HOT [None]
  - FIBROMYALGIA [None]
  - FOOD CRAVING [None]
  - HYPOAESTHESIA [None]
  - WEIGHT INCREASED [None]
